FAERS Safety Report 17048181 (Version 1)
Quarter: 2019Q4

REPORT INFORMATION
  Report Type: Spontaneous
  Country: US (occurrence: US)
  Receive Date: 20191119
  Receipt Date: 20191119
  Transmission Date: 20200122
  Serious: No
  Sender: FDA-Public Use
  Company Number: US-PFIZER INC-2019496428

PATIENT
  Age: 76 Year
  Sex: Female
  Weight: 66.21 kg

DRUGS (1)
  1. IBRANCE [Suspect]
     Active Substance: PALBOCICLIB
     Indication: METASTASES TO BONE
     Dosage: 100 MG, CYCLIC(ONCE DAILY ON DAYS 1 THROUGH 21 EVERY 28 DAYS)
     Route: 048
     Dates: start: 201903

REACTIONS (1)
  - White blood cell count decreased [Recovered/Resolved]
